FAERS Safety Report 4857386-3 (Version None)
Quarter: 2005Q4

REPORT INFORMATION
  Report Type: 
  Country: None (occurrence: None)
  Receive Date: 20051219
  Receipt Date: 20050301
  Transmission Date: 20060501
  Serious: No
  Sender: FDA-Public Use
  Company Number: US-GLAXOSMITHKLINE-A0547727A

PATIENT
  Age: 30 Year
  Sex: Male

DRUGS (1)
  1. NICODERM CQ [Suspect]
     Dates: start: 20050227

REACTIONS (3)
  - NICOTINE DEPENDENCE [None]
  - PAIN IN EXTREMITY [None]
  - SENSATION OF HEAVINESS [None]
